FAERS Safety Report 9532460 (Version 1)
Quarter: 2013Q3

REPORT INFORMATION
  Report Type: Report from Study
  Country: CA (occurrence: CA)
  Receive Date: 20130918
  Receipt Date: 20130918
  Transmission Date: 20140515
  Serious: Yes (Hospitalization)
  Sender: FDA-Public Use
  Company Number: CA-ROCHE-1276149

PATIENT
  Age: 62 Year
  Sex: Female
  Weight: 99.8 kg

DRUGS (8)
  1. RITUXAN [Suspect]
     Indication: RHEUMATOID ARTHRITIS
     Dosage: DAY 1, DAY 15
     Route: 042
     Dates: start: 20130110
  2. DIPHENHYDRAMINE HCL [Concomitant]
     Indication: PREMEDICATION
     Route: 048
     Dates: start: 20130124
  3. ACETAMINOPHEN [Concomitant]
     Indication: PREMEDICATION
     Route: 048
     Dates: start: 20130124
  4. METHYLPREDNISOLONE [Concomitant]
     Indication: PREMEDICATION
     Route: 042
     Dates: start: 20130124
  5. METHOTREXATE [Concomitant]
  6. TECTA [Concomitant]
  7. AMITRIPTYLINE [Concomitant]
  8. RAMIPRIL [Concomitant]

REACTIONS (3)
  - Knee arthroplasty [Recovered/Resolved]
  - Therapeutic product ineffective [Not Recovered/Not Resolved]
  - Arthralgia [Not Recovered/Not Resolved]
